FAERS Safety Report 4654481-9 (Version None)
Quarter: 2005Q2

REPORT INFORMATION
  Report Type: 
  Country: None (occurrence: None)
  Receive Date: 20050404
  Receipt Date: 20050104
  Transmission Date: 20051028
  Serious: No
  Sender: FDA-Public Use
  Company Number: USA050187476

PATIENT
  Sex: Female

DRUGS (7)
  1. CYMBALTA [Suspect]
     Indication: FIBROMYALGIA
     Dosage: 60 MG/ 2 DAY
  2. ELAVIL [Concomitant]
  3. ULTRAM [Concomitant]
  4. TOPAMAX [Concomitant]
  5. DIOVAN [Concomitant]
  6. APO-METOPROLOL (METOPROLOL TARTRATE) [Concomitant]
  7. MOBIC [Concomitant]

REACTIONS (3)
  - PRESCRIBED OVERDOSE [None]
  - PRURITUS [None]
  - SOMNOLENCE [None]
